FAERS Safety Report 7258601-1 (Version None)
Quarter: 2011Q1

REPORT INFORMATION
  Report Type: 
  Country: None (occurrence: None)
  Receive Date: 20110129
  Receipt Date: 20100830
  Transmission Date: 20110831
  Serious: Yes (Other)
  Sender: FDA-Public Use
  Company Number: US-ABBOTT-07P-163-0367537-00

PATIENT
  Sex: Female
  Weight: 99.88 kg

DRUGS (3)
  1. PREDNISONE [Concomitant]
     Indication: RHEUMATOID ARTHRITIS
     Route: 048
     Dates: start: 20020101
  2. HUMIRA [Suspect]
     Indication: RHEUMATOID ARTHRITIS
     Route: 058
     Dates: start: 20060201, end: 20070501
  3. NORVASC [Concomitant]
     Indication: HYPERTENSION
     Route: 048
     Dates: start: 20030101

REACTIONS (10)
  - INJECTION SITE INFLAMMATION [None]
  - RASH [None]
  - INJECTION SITE ERYTHEMA [None]
  - NEOPLASM SKIN [None]
  - RHEUMATOID ARTHRITIS [None]
  - PAIN [None]
  - VOMITING [None]
  - PRURITUS [None]
  - MUSCULOSKELETAL STIFFNESS [None]
  - PYREXIA [None]
